FAERS Safety Report 23357407 (Version 1)
Quarter: 2024Q1

REPORT INFORMATION
  Report Type: Spontaneous
  Country: CN (occurrence: CN)
  Receive Date: 20240102
  Receipt Date: 20240102
  Transmission Date: 20240409
  Serious: Yes (Hospitalization)
  Sender: FDA-Public Use
  Company Number: CN-PUMA BIOTECHNOLOGY, LTD.-2023-PUM-CN002260

PATIENT

DRUGS (5)
  1. NERLYNX [Suspect]
     Active Substance: NERATINIB
     Indication: Product used for unknown indication
     Dosage: 3 TABLETS, DAILY
     Route: 048
     Dates: start: 2023, end: 2023
  2. NERLYNX [Suspect]
     Active Substance: NERATINIB
     Dosage: 4 TABLETS, DAILY
     Route: 048
     Dates: start: 2023, end: 2023
  3. NERLYNX [Suspect]
     Active Substance: NERATINIB
     Dosage: 5 TABLET, DAILY
     Route: 048
     Dates: start: 2023, end: 2023
  4. NERLYNX [Suspect]
     Active Substance: NERATINIB
     Dosage: 6 TABLET, DAILY
     Route: 048
     Dates: start: 2023, end: 2023
  5. NERLYNX [Suspect]
     Active Substance: NERATINIB
     Dosage: UNK
     Route: 048
     Dates: start: 2023, end: 2023

REACTIONS (4)
  - Nasopharyngitis [Unknown]
  - Stomatitis [Recovering/Resolving]
  - Diarrhoea [Unknown]
  - Drug titration error [Unknown]

NARRATIVE: CASE EVENT DATE: 20230101
